FAERS Safety Report 16087703 (Version 1)
Quarter: 2019Q1

REPORT INFORMATION
  Report Type: Spontaneous
  Country: US (occurrence: US)
  Receive Date: 20190319
  Receipt Date: 20190319
  Transmission Date: 20190418
  Serious: Yes (Other)
  Sender: FDA-Public Use
  Company Number: US-BRISTOL-MYERS SQUIBB COMPANY-BMS-2019-027133

PATIENT
  Age: 56 Year
  Sex: Male

DRUGS (3)
  1. PEGINTERFERON ALFA W/RIBAVIRIN [Suspect]
     Active Substance: PEGINTERFERON ALFA-2A\RIBAVIRIN
     Indication: HEPATITIS C
     Dosage: UNK
     Route: 065
  2. DASABUVIR W/OMBITASVIR/PARITAPREVIR/RITONAVIR? [Suspect]
     Active Substance: DASABUVIR\OMBITASVIR\PARITAPREVIR\RITONAVIR
     Indication: HEPATITIS C
     Dosage: UNK
     Route: 016
  3. DACLATASVIR DIHYDROCHLORIDE [Suspect]
     Active Substance: DACLATASVIR DIHYDROCHLORIDE
     Indication: HEPATITIS C
     Dosage: UNK
     Route: 065

REACTIONS (2)
  - Virologic failure [Unknown]
  - Viral mutation identified [Unknown]
